FAERS Safety Report 7980879-7 (Version None)
Quarter: 2011Q4

REPORT INFORMATION
  Report Type: 
  Country: None (occurrence: None)
  Receive Date: 20111214
  Receipt Date: 20111201
  Transmission Date: 20120403
  Serious: Yes (Other)
  Sender: FDA-Public Use
  Company Number: QA-MYLANLABS-2011S1024986

PATIENT

DRUGS (1)
  1. REMIFENTANIL [Suspect]
     Route: 042

REACTIONS (3)
  - LOSS OF CONSCIOUSNESS [None]
  - CYANOSIS [None]
  - BRADYCARDIA [None]
